FAERS Safety Report 21813256 (Version 1)
Quarter: 2023Q1

REPORT INFORMATION
  Report Type: Spontaneous
  Country: CA (occurrence: CA)
  Receive Date: 20230103
  Receipt Date: 20230103
  Transmission Date: 20230417
  Serious: Yes (Life-Threatening, Hospitalization, Other)
  Sender: FDA-Public Use
  Company Number: CA-TEVA-2022-CA-2842479

PATIENT

DRUGS (2)
  1. PREDNISOLONE [Suspect]
     Active Substance: PREDNISOLONE
     Indication: Infantile spasms
     Dosage: 4 MG/KG DAILY;
     Route: 065
  2. PREDNISOLONE [Suspect]
     Active Substance: PREDNISOLONE
     Indication: Infantile spasms
     Route: 065

REACTIONS (5)
  - Abdominal pain [Unknown]
  - Adrenocortical insufficiency acute [Unknown]
  - General physical health deterioration [Unknown]
  - Vomiting [Unknown]
  - Irritability [Unknown]
